FAERS Safety Report 9110785 (Version 1)
Quarter: 2013Q1

REPORT INFORMATION
  Report Type: Spontaneous
  Country: US (occurrence: US)
  Receive Date: 20130219
  Receipt Date: 20130219
  Transmission Date: 20140127
  Serious: No
  Sender: FDA-Public Use
  Company Number: US-BRISTOL-MYERS SQUIBB COMPANY-16595746

PATIENT
  Age: 61 Year
  Sex: Female
  Weight: 68.93 kg

DRUGS (4)
  1. ABATACEPT SUBQ INJECTION 125MG/ML [Suspect]
     Indication: PSORIATIC ARTHROPATHY
     Dosage: LAST DOSE:13MAY2012
     Route: 058
  2. COZAAR [Concomitant]
  3. PREDNISONE [Concomitant]
  4. GLIPIZIDE [Concomitant]

REACTIONS (2)
  - Hypertension [Unknown]
  - Hypotension [Unknown]
